FAERS Safety Report 14747630 (Version 1)
Quarter: 2018Q2

REPORT INFORMATION
  Report Type: Spontaneous
  Country: US (occurrence: US)
  Receive Date: 20180411
  Receipt Date: 20180411
  Transmission Date: 20180711
  Serious: Yes (Hospitalization)
  Sender: FDA-Public Use
  Company Number: US-ROCHE-2102409

PATIENT
  Sex: Male

DRUGS (2)
  1. XELODA [Suspect]
     Active Substance: CAPECITABINE
     Indication: CHOLANGIOCARCINOMA
  2. XELODA [Suspect]
     Active Substance: CAPECITABINE
     Indication: HEPATIC CANCER
     Dosage: ONGOING: UNKNOWN; 2000MG AM, 1500MG PM
     Route: 048
     Dates: start: 20171221

REACTIONS (3)
  - Intra-abdominal fluid collection [Unknown]
  - Intentional product use issue [Unknown]
  - Off label use [Unknown]
